FAERS Safety Report 7901208-0 (Version None)
Quarter: 2011Q4

REPORT INFORMATION
  Report Type: 
  Country: None (occurrence: None)
  Receive Date: 20111108
  Receipt Date: 20111025
  Transmission Date: 20120403
  Serious: Yes (Hospitalization, Other)
  Sender: FDA-Public Use
  Company Number: PHEH2009US09836

PATIENT
  Sex: Male

DRUGS (16)
  1. ZOMETA [Suspect]
     Dates: end: 20070801
  2. AMBIEN [Concomitant]
  3. ASCORBIC ACID [Concomitant]
  4. VITAMIN E [Concomitant]
  5. ANZEMET [Concomitant]
  6. TYLENOL-500 [Concomitant]
  7. MIRAPEX [Concomitant]
  8. PAXIL [Concomitant]
  9. PRAMIPEXOLE DIHYDROCHLORIDE [Concomitant]
  10. CLONIDINE [Concomitant]
  11. CIPRO [Concomitant]
  12. DIOVAN [Concomitant]
  13. VASOTEC [Concomitant]
  14. SINEMET [Concomitant]
  15. ZOFRAN [Concomitant]
  16. ULTRAM [Concomitant]

REACTIONS (31)
  - ANXIETY [None]
  - CONSTIPATION [None]
  - ACTINIC KERATOSIS [None]
  - GENERAL PHYSICAL HEALTH DETERIORATION [None]
  - DECREASED INTEREST [None]
  - HALLUCINATION [None]
  - NOCTURIA [None]
  - NEPHROLITHIASIS [None]
  - SOMNOLENCE [None]
  - BENIGN PROSTATIC HYPERPLASIA [None]
  - PAIN [None]
  - FALL [None]
  - OSTEOPOROSIS [None]
  - CYSTITIS HAEMORRHAGIC [None]
  - LENTIGO [None]
  - HYPERTONIC BLADDER [None]
  - RENAL CYST [None]
  - CHEST PAIN [None]
  - URINARY TRACT INFECTION [None]
  - OSTEONECROSIS OF JAW [None]
  - OSTEOPENIA [None]
  - PARKINSON'S DISEASE [None]
  - HIATUS HERNIA [None]
  - THROMBOCYTOPENIA [None]
  - HYPERTENSION [None]
  - LUNG HYPERINFLATION [None]
  - PAIN IN EXTREMITY [None]
  - HYPERTENSIVE CRISIS [None]
  - URINARY TRACT OBSTRUCTION [None]
  - DYSPNOEA [None]
  - AORTIC DISORDER [None]
